FAERS Safety Report 20101828 (Version 2)
Quarter: 2022Q2

REPORT INFORMATION
  Report Type: Spontaneous
  Country: JP (occurrence: JP)
  Receive Date: 20211123
  Receipt Date: 20220613
  Transmission Date: 20220720
  Serious: Yes (Other)
  Sender: FDA-Public Use
  Company Number: JP-TAKEDA-2021TJP112086

PATIENT
  Age: 53 Year
  Sex: Female
  Weight: 66 kg

DRUGS (3)
  1. ZEJULA [Suspect]
     Active Substance: NIRAPARIB
     Indication: Ovarian cancer stage III
     Dosage: 100 MILLIGRAM, BID
     Route: 048
     Dates: start: 20210709, end: 20210930
  2. ZEJULA [Suspect]
     Active Substance: NIRAPARIB
     Dosage: 100 MG, QD
     Route: 048
     Dates: start: 20211029
  3. FERROUS CITRATE [Concomitant]
     Active Substance: FERROUS CITRATE
     Indication: Anaemia
     Dosage: 50 MG, BID
     Route: 048
     Dates: start: 20210727, end: 20211119

REACTIONS (5)
  - Myelosuppression [Not Recovered/Not Resolved]
  - Blood creatine phosphokinase increased [Unknown]
  - Nodule [Unknown]
  - Condition aggravated [Unknown]
  - Myalgia [Unknown]

NARRATIVE: CASE EVENT DATE: 20211001
